FAERS Safety Report 9958511 (Version 1)
Quarter: 2014Q1

REPORT INFORMATION
  Report Type: Spontaneous
  Country: CH (occurrence: CH)
  Receive Date: 20140305
  Receipt Date: 20140305
  Transmission Date: 20141002
  Serious: Yes (Disabling)
  Sender: FDA-Public Use
  Company Number: CH-AMGEN-CHESP2014014021

PATIENT
  Age: 67 Year
  Sex: Female

DRUGS (4)
  1. PROLIA [Suspect]
     Indication: OSTEOPOROSIS
     Dosage: 60 MG, Q6MO
     Route: 058
     Dates: start: 20111201
  2. MADOPAR [Concomitant]
     Indication: RESTLESS LEGS SYNDROME
     Dosage: 250 MG, UNK
     Route: 048
  3. CALCIVIT FORTE [Concomitant]
     Indication: OSTEOPOROSIS
     Route: 048
  4. TARGIN [Concomitant]
     Indication: PAIN
     Route: 048

REACTIONS (1)
  - Osteonecrosis of jaw [Not Recovered/Not Resolved]
